FAERS Safety Report 10278172 (Version 1)
Quarter: 2014Q3

REPORT INFORMATION
  Report Type: Spontaneous
  Country: GB (occurrence: GB)
  Receive Date: 20140704
  Receipt Date: 20140704
  Transmission Date: 20150326
  Serious: Yes (Hospitalization, Disabling, Other)
  Sender: FDA-Public Use
  Company Number: GB-009507513-1406GBR013883

PATIENT
  Sex: Female

DRUGS (2)
  1. DEXAMETHASONE TABLETS BP  2.0MG [Suspect]
     Active Substance: DEXAMETHASONE
     Dosage: 2MG DAILY
  2. TEMOZOLOMIDE [Suspect]
     Active Substance: TEMOZOLOMIDE
     Dosage: UNK, FEW DAYS
     Route: 048
     Dates: start: 2011, end: 2011

REACTIONS (7)
  - Disability [Unknown]
  - Epistaxis [Unknown]
  - Bedridden [Unknown]
  - Skin disorder [Unknown]
  - Recurrent cancer [Unknown]
  - Transfusion [Unknown]
  - Drug intolerance [Unknown]

NARRATIVE: CASE EVENT DATE: 2011
